FAERS Safety Report 9748691 (Version 1)
Quarter: 2013Q4

REPORT INFORMATION
  Report Type: Spontaneous
  Country: US (occurrence: US)
  Receive Date: 20131212
  Receipt Date: 20131212
  Transmission Date: 20140711
  Serious: Yes (Other)
  Sender: FDA-Public Use
  Company Number: US-SA-2013SA128957

PATIENT
  Sex: Male

DRUGS (2)
  1. LANTUS [Suspect]
     Route: 058
  2. HUMALOG [Suspect]
     Route: 058

REACTIONS (6)
  - Cardiac disorder [Unknown]
  - Arthropathy [Unknown]
  - Anaemia [Unknown]
  - Epistaxis [Unknown]
  - Hyperkalaemia [Unknown]
  - Blood glucose decreased [Unknown]
